FAERS Safety Report 7673224-8 (Version None)
Quarter: 2011Q3

REPORT INFORMATION
  Report Type: 
  Country: None (occurrence: None)
  Receive Date: 20110810
  Receipt Date: 20110804
  Transmission Date: 20111222
  Serious: Yes (Life-Threatening, Hospitalization)
  Sender: FDA-Public Use
  Company Number: FR-AMGEN-FRASP2011024539

PATIENT
  Age: 71 Year
  Sex: Male
  Weight: 101 kg

DRUGS (8)
  1. AMLODIPINE BESILATE W/VALSARTAN [Concomitant]
  2. CRESTOR [Concomitant]
  3. ESCITALOPRAM [Concomitant]
  4. ENBREL [Suspect]
     Indication: PSORIASIS
     Dosage: 50 MG, WEEKLY
     Route: 058
     Dates: start: 20080911, end: 20090415
  5. TADENAN                            /00628801/ [Concomitant]
  6. ATENOLOL [Concomitant]
     Dosage: ^50^
  7. ASPIRIN [Concomitant]
     Indication: CORONARY ARTERY BYPASS
     Dosage: 160 MG, 1X/DAY
     Route: 048
     Dates: start: 20030401
  8. ENBREL [Suspect]
     Indication: ANKYLOSING SPONDYLITIS
     Dosage: 50 MG, WEEKLY
     Route: 058
     Dates: start: 20100408, end: 20110419

REACTIONS (2)
  - ABDOMINAL PAIN [None]
  - MESENTERIC VEIN THROMBOSIS [None]
